FAERS Safety Report 15225703 (Version 1)
Quarter: 2018Q3

REPORT INFORMATION
  Report Type: Spontaneous
  Country: US (occurrence: US)
  Receive Date: 20180801
  Receipt Date: 20180801
  Transmission Date: 20181010
  Serious: No
  Sender: FDA-Public Use
  Company Number: US-PFIZER INC-2018182296

PATIENT
  Age: 70 Year
  Sex: Female

DRUGS (2)
  1. DOCETAXEL. [Suspect]
     Active Substance: DOCETAXEL
     Indication: INVASIVE DUCTAL BREAST CARCINOMA
  2. TAXOTERE [Suspect]
     Active Substance: DOCETAXEL
     Indication: INVASIVE DUCTAL BREAST CARCINOMA
     Dosage: UNK, CYCLIC (EVERY 2 WEEKS)

REACTIONS (5)
  - Hair colour changes [Unknown]
  - Madarosis [Unknown]
  - Hair disorder [Unknown]
  - Alopecia [Unknown]
  - Hair texture abnormal [Unknown]

NARRATIVE: CASE EVENT DATE: 200709
